FAERS Safety Report 16856584 (Version 1)
Quarter: 2019Q3

REPORT INFORMATION
  Report Type: Spontaneous
  Country: US (occurrence: US)
  Receive Date: 20190926
  Receipt Date: 20190926
  Transmission Date: 20191005
  Serious: No
  Sender: FDA-Public Use
  Company Number: US-ROMARKLABS-2019-US-000017

PATIENT
  Age: 52 Year
  Sex: Female

DRUGS (3)
  1. UNSPECIFIED THYROID MEDICATION [Concomitant]
     Active Substance: UNSPECIFIED INGREDIENT
     Indication: PRODUCT USED FOR UNKNOWN INDICATION
  2. ALINIA [Suspect]
     Active Substance: NITAZOXANIDE
     Indication: LYME DISEASE
     Dosage: 1 TABLET DAILY
     Route: 048
     Dates: start: 201801
  3. UNSPECIFIED ANTIHISTAMINES [Concomitant]
     Active Substance: ANTIHISTAMINES NOS
     Indication: MULTIPLE ALLERGIES

REACTIONS (6)
  - Malaise [Recovered/Resolved]
  - Chromaturia [Not Recovered/Not Resolved]
  - Urinary incontinence [Recovered/Resolved]
  - Fatigue [Not Recovered/Not Resolved]
  - Nausea [Not Recovered/Not Resolved]
  - Scleral discolouration [Not Recovered/Not Resolved]

NARRATIVE: CASE EVENT DATE: 201801
